FAERS Safety Report 9804754 (Version 2)
Quarter: 2014Q1

REPORT INFORMATION
  Report Type: Spontaneous
  Country: US (occurrence: US)
  Receive Date: 20140108
  Receipt Date: 20140129
  Transmission Date: 20141002
  Serious: No
  Sender: FDA-Public Use
  Company Number: US-GILEAD-2014-0091554

PATIENT
  Sex: Female

DRUGS (4)
  1. LETAIRIS [Suspect]
     Indication: PULMONARY HYPERTENSION
     Dosage: 10 MG, QD
     Route: 065
     Dates: start: 20080816
  2. LETAIRIS [Suspect]
     Indication: SYSTEMIC SCLEROSIS
  3. REVATIO [Concomitant]
  4. LEVAQUIN [Concomitant]
     Indication: VIRAL INFECTION

REACTIONS (3)
  - Cough [Unknown]
  - Pyrexia [Unknown]
  - Fatigue [Unknown]
